FAERS Safety Report 12046925 (Version 1)
Quarter: 2016Q1

REPORT INFORMATION
  Report Type: Report from Study
  Country: US (occurrence: US)
  Receive Date: 20160209
  Receipt Date: 20160209
  Transmission Date: 20160526
  Serious: Yes (Other)
  Sender: FDA-Public Use
  Company Number: US-AMGEN-USASL2016012232

PATIENT
  Age: 49 Year
  Sex: Female

DRUGS (1)
  1. ENBREL [Suspect]
     Active Substance: ETANERCEPT
     Indication: PSORIATIC ARTHROPATHY
     Dosage: UNK UNK, UNK
     Route: 065

REACTIONS (7)
  - Inappropriate schedule of drug administration [Unknown]
  - Injection site pain [Unknown]
  - Daydreaming [Unknown]
  - Injection site reaction [Unknown]
  - Injection site swelling [Recovered/Resolved]
  - Limb operation [Unknown]
  - Injection site mass [Recovered/Resolved]
